FAERS Safety Report 5851308-4 (Version None)
Quarter: 2008Q3

REPORT INFORMATION
  Report Type: 
  Country: None (occurrence: None)
  Receive Date: 20080820
  Receipt Date: 20080814
  Transmission Date: 20090109
  Serious: Yes (Hospitalization, Other)
  Sender: FDA-Public Use
  Company Number: BR-BAYER-200814557LA

PATIENT
  Age: 43 Year
  Sex: Male

DRUGS (10)
  1. BETAFERON [Suspect]
     Indication: RELAPSING-REMITTING MULTIPLE SCLEROSIS
     Route: 058
     Dates: start: 20030101
  2. BETAFERON [Suspect]
     Route: 058
     Dates: start: 20040101
  3. GLIFAGE [Concomitant]
     Indication: DIABETES MELLITUS
     Dosage: TOTAL DAILY DOSE: 2550 MG  UNIT DOSE: 850 MG
     Route: 048
     Dates: start: 20040101
  4. IMIPRAMINE [Concomitant]
     Indication: DEPRESSION
     Dosage: TOTAL DAILY DOSE: 2 DF
     Route: 048
     Dates: start: 20080201
  5. AMPLICTIL [Concomitant]
     Indication: PAIN
     Route: 048
     Dates: start: 20040101
  6. DIENPAX [Concomitant]
     Indication: INSOMNIA
     Route: 048
     Dates: start: 20040101
  7. LORAX [Concomitant]
     Indication: INSOMNIA
     Dosage: TOTAL DAILY DOSE: 2 MG  UNIT DOSE: 2 MG
     Route: 048
     Dates: start: 20040101
  8. SLOW-K [Concomitant]
     Indication: ELECTROLYTE SUBSTITUTION THERAPY
     Dosage: TOTAL DAILY DOSE: 3 DF
     Route: 048
     Dates: start: 20040101
  9. DIUREX [Concomitant]
     Indication: POLYURIA
     Dosage: TOTAL DAILY DOSE: 30 MG  UNIT DOSE: 10 MG
     Route: 048
     Dates: start: 20040101
  10. VASOPRIL [Concomitant]
     Indication: DRUG USE FOR UNKNOWN INDICATION
     Dosage: TOTAL DAILY DOSE: 3 DF
     Route: 048
     Dates: start: 20070101

REACTIONS (24)
  - ABNORMAL SLEEP-RELATED EVENT [None]
  - ASTHENIA [None]
  - CHEST DISCOMFORT [None]
  - CHILLS [None]
  - FAECAL INCONTINENCE [None]
  - FEELING COLD [None]
  - GLOSSODYNIA [None]
  - HEPATIC ENZYME ABNORMAL [None]
  - HEPATOMEGALY [None]
  - INJECTION SITE MASS [None]
  - INSOMNIA [None]
  - MULTIPLE SCLEROSIS [None]
  - MULTIPLE SCLEROSIS RELAPSE [None]
  - MUSCULAR WEAKNESS [None]
  - MUSCULOSKELETAL PAIN [None]
  - MYALGIA [None]
  - NAUSEA [None]
  - PAIN [None]
  - PARAESTHESIA ORAL [None]
  - PROCEDURAL PAIN [None]
  - SENSATION OF HEAVINESS [None]
  - SENSORY DISTURBANCE [None]
  - SKIN NECROSIS [None]
  - URINARY INCONTINENCE [None]
